FAERS Safety Report 13558742 (Version 1)
Quarter: 2017Q2

REPORT INFORMATION
  Report Type: Spontaneous
  Country: US (occurrence: US)
  Receive Date: 20170518
  Receipt Date: 20170518
  Transmission Date: 20170830
  Serious: No
  Sender: FDA-Public Use
  Company Number: None

PATIENT
  Age: 75 Year
  Sex: Female

DRUGS (1)
  1. CAPECITABINE TAB 500MG [Suspect]
     Active Substance: CAPECITABINE

REACTIONS (5)
  - Pain [None]
  - Blister [None]
  - Gait disturbance [None]
  - Chemical burn [None]
  - Erythema [None]

NARRATIVE: CASE EVENT DATE: 20170518
